FAERS Safety Report 4374802-4 (Version None)
Quarter: 2004Q2

REPORT INFORMATION
  Report Type: 
  Country: None (occurrence: None)
  Receive Date: 20040604
  Receipt Date: 20040524
  Transmission Date: 20050107
  Serious: Yes (Hospitalization, Other)
  Sender: FDA-Public Use
  Company Number: 2004015305

PATIENT
  Age: 27 Year
  Sex: Male

DRUGS (3)
  1. ZELDOX (CAPSULES) (ZIPRASIDONE) [Suspect]
     Indication: SCHIZOPHRENIA, PARANOID TYPE
     Dosage: 160 MG (80 MG, 2 IN 2 D), ORAL
     Route: 048
     Dates: start: 20030617, end: 20030731
  2. ZOPICLONE (ZOPICLONE) [Concomitant]
  3. ALIMEMAZINE TARTRATE (ALIMEMAZINE TARTRATE) [Concomitant]

REACTIONS (1)
  - MONOPLEGIA [None]
